FAERS Safety Report 9749463 (Version 1)
Quarter: 2013Q4

REPORT INFORMATION
  Report Type: Spontaneous
  Country: US (occurrence: None)
  Receive Date: 20131211
  Receipt Date: 20131211
  Transmission Date: 20140711
  Serious: No
  Sender: FDA-Public Use
  Company Number: None

PATIENT
  Age: 47 Year
  Sex: Female

DRUGS (4)
  1. TECFIDERA [Suspect]
     Indication: MULTIPLE SCLEROSIS
     Dosage: 1 CAPSULE
     Route: 048
     Dates: start: 201311
  2. CELEXA [Concomitant]
  3. REMERON [Concomitant]
  4. VITAMIN D [Concomitant]

REACTIONS (2)
  - Abdominal discomfort [None]
  - Flushing [None]
